FAERS Safety Report 16193537 (Version 1)
Quarter: 2019Q2

REPORT INFORMATION
  Report Type: Spontaneous
  Country: US (occurrence: US)
  Receive Date: 20190413
  Receipt Date: 20190413
  Transmission Date: 20190711
  Serious: No
  Sender: FDA-Public Use
  Company Number: PHEH2019US015607

PATIENT
  Sex: Male

DRUGS (2)
  1. TELOTRISTAT ETHYL [Concomitant]
     Active Substance: TELOTRISTAT ETHYL
     Dosage: 500 MG, TID
     Route: 048
     Dates: start: 20180814
  2. AFINITOR [Suspect]
     Active Substance: EVEROLIMUS
     Indication: PRODUCT USED FOR UNKNOWN INDICATION
     Dosage: 10 MG, QD
     Route: 048

REACTIONS (1)
  - Blood pressure increased [Not Recovered/Not Resolved]
